FAERS Safety Report 24781594 (Version 1)
Quarter: 2024Q4

REPORT INFORMATION
  Report Type: Spontaneous
  Country: NL (occurrence: NL)
  Receive Date: 20241227
  Receipt Date: 20241227
  Transmission Date: 20250115
  Serious: Yes (Hospitalization)
  Sender: AUROBINDO
  Company Number: NL-LRB-01020016

PATIENT
  Age: 80 Year
  Sex: Male
  Weight: 83.6 kg

DRUGS (9)
  1. METOPROLOL [Suspect]
     Active Substance: METOPROLOL
     Indication: Atrial fibrillation
     Dosage: 50 MILLIGRAM, ONCE A DAY [1D1]
     Route: 048
     Dates: start: 20241028, end: 20241105
  2. TOLBUTAMIDE [Concomitant]
     Active Substance: TOLBUTAMIDE
     Indication: Product used for unknown indication
     Dosage: TABLET, 500 MG (MILLIGRAM)
     Route: 048
  3. Omeprazoe [Concomitant]
     Indication: Product used for unknown indication
     Dosage: MAAGSAPRESISTENTE CAPSULE, 20 MG (MILLIGRAM)
     Route: 048
  4. METFORMIN HYDROCHLORIDE [Concomitant]
     Active Substance: METFORMIN HYDROCHLORIDE
     Indication: Product used for unknown indication
     Dosage: TABLET MET GEREGULEERDE AFGIFTE, 500 MG (MILLIGRAM)
     Route: 048
  5. DAPAGLIFLOZIN [Concomitant]
     Active Substance: DAPAGLIFLOZIN
     Indication: Product used for unknown indication
     Dosage: TABLET, 10 MG (MILLIGRAM)
     Route: 048
  6. DUTASTERIDE\TAMSULOSIN [Concomitant]
     Active Substance: DUTASTERIDE\TAMSULOSIN
     Indication: Product used for unknown indication
     Dosage: CAPSULE, 0.5/0.4 MG (MILLIGRAM)
     Route: 048
  7. ATORVASTATIN [Concomitant]
     Active Substance: ATORVASTATIN
     Indication: Product used for unknown indication
     Dosage: TABLET, 10 MG (MILLIGRAM)
     Route: 048
  8. APIXABAN [Concomitant]
     Active Substance: APIXABAN
     Indication: Product used for unknown indication
     Dosage: TABLET, 5 MG (MILLIGRAM)
     Route: 048
  9. AMLODIPINE [Concomitant]
     Active Substance: AMLODIPINE BESYLATE
     Indication: Product used for unknown indication
     Dosage: TABLET, 5 MG (MILLIGRAM)
     Route: 048

REACTIONS (4)
  - Cognitive disorder [Recovered/Resolved]
  - Apraxia [Recovered/Resolved]
  - Aphasia [Recovered/Resolved]
  - Agitation [Unknown]
